FAERS Safety Report 5819857-2 (Version None)
Quarter: 2008Q3

REPORT INFORMATION
  Report Type: 
  Country: None (occurrence: None)
  Receive Date: 20080723
  Receipt Date: 20080714
  Transmission Date: 20090109
  Serious: Yes (Hospitalization)
  Sender: FDA-Public Use
  Company Number: US-MERCK-0807USA02640

PATIENT
  Age: 69 Year
  Sex: Female

DRUGS (7)
  1. DECADRON SRC [Suspect]
     Route: 048
  2. THALOMID [Suspect]
     Indication: MULTIPLE MYELOMA
     Route: 048
     Dates: start: 20080512, end: 20080618
  3. REGLAN [Concomitant]
     Route: 065
  4. ACIPHEX [Concomitant]
     Route: 065
  5. INDERAL [Concomitant]
     Route: 065
  6. PAXIL [Concomitant]
     Route: 065
  7. ESTROGENS (UNSPECIFIED) [Concomitant]
     Route: 065

REACTIONS (5)
  - BONE PAIN [None]
  - BRONCHOPNEUMONIA [None]
  - DRUG INEFFECTIVE [None]
  - FATIGUE [None]
  - PALPITATIONS [None]
